FAERS Safety Report 20596450 (Version 1)
Quarter: 2022Q1

REPORT INFORMATION
  Report Type: Spontaneous
  Country: US (occurrence: US)
  Receive Date: 20220315
  Receipt Date: 20220315
  Transmission Date: 20220423
  Serious: No
  Sender: FDA-Public Use
  Company Number: US-PFIZER INC-202200377135

PATIENT
  Age: 48 Year
  Sex: Female

DRUGS (1)
  1. IBRANCE [Suspect]
     Active Substance: PALBOCICLIB
     Indication: Breast cancer female
     Dosage: 125 MG, CYCLIC(TAKE 1 TABLET BY MOUTH EVERY DAY FOR 21 DAYS ON, THEN 7 DAYS OFF)
     Route: 048

REACTIONS (2)
  - Red blood cell count decreased [Not Recovered/Not Resolved]
  - COVID-19 [Not Recovered/Not Resolved]
